FAERS Safety Report 16814156 (Version 1)
Quarter: 2019Q3

REPORT INFORMATION
  Report Type: Spontaneous
  Country: US (occurrence: US)
  Receive Date: 20190917
  Receipt Date: 20190917
  Transmission Date: 20191005
  Serious: No
  Sender: FDA-Public Use
  Company Number: US-ALLERGAN-1853208US

PATIENT
  Sex: Male

DRUGS (3)
  1. CARAFATE [Suspect]
     Active Substance: SUCRALFATE
     Dosage: UNKNOWN
     Route: 048
     Dates: start: 20181112, end: 201811
  2. PEPPERMINT OIL [Concomitant]
     Active Substance: PEPPERMINT OIL
     Indication: DYSPEPSIA
     Dosage: UNK
     Dates: start: 201811
  3. CARAFATE [Suspect]
     Active Substance: SUCRALFATE
     Indication: PRODUCT USED FOR UNKNOWN INDICATION
     Dosage: UNKNOWN
     Route: 048
     Dates: end: 20181120

REACTIONS (3)
  - Dyspepsia [Recovered/Resolved]
  - Dysgeusia [Recovered/Resolved]
  - Nausea [Recovered/Resolved]

NARRATIVE: CASE EVENT DATE: 20181112
